FAERS Safety Report 6906780-5 (Version None)
Quarter: 2010Q3

REPORT INFORMATION
  Report Type: 
  Country: None (occurrence: None)
  Receive Date: 20100727
  Receipt Date: 20100716
  Transmission Date: 20110219
  Serious: No
  Sender: FDA-Public Use
  Company Number: US-JNJFOC-20100705921

PATIENT
  Sex: Female
  Weight: 136.08 kg

DRUGS (2)
  1. DURAGESIC-100 [Suspect]
     Indication: BACK PAIN
     Dosage: NDC NUMBER: 50458-0091-05
     Route: 062
  2. DIAZEPAM [Concomitant]
     Indication: INTERVERTEBRAL DISC PROTRUSION
     Route: 048

REACTIONS (2)
  - PRODUCT ADHESION ISSUE [None]
  - WRONG TECHNIQUE IN DRUG USAGE PROCESS [None]
